FAERS Safety Report 7106255-7 (Version None)
Quarter: 2010Q4

REPORT INFORMATION
  Report Type: 
  Country: None (occurrence: None)
  Receive Date: 20101116
  Receipt Date: 20101111
  Transmission Date: 20110411
  Serious: Yes (Other)
  Sender: FDA-Public Use
  Company Number: GR-PFIZER INC-2010145739

PATIENT
  Age: 64 Year
  Sex: Male

DRUGS (1)
  1. SUTENT [Suspect]
     Indication: THYROID CANCER
     Dosage: 50 MG, 1X/DAY,  (4 WEEKS ON, 2 WEEKS OFF)
     Route: 048
     Dates: start: 20100901

REACTIONS (3)
  - BRONCHITIS [None]
  - HEPATOMEGALY [None]
  - LOWER RESPIRATORY TRACT INFECTION [None]
